FAERS Safety Report 9568325 (Version 2)
Quarter: 2015Q1

REPORT INFORMATION
  Report Type: Spontaneous
  Country: US (occurrence: US)
  Receive Date: 20130930
  Receipt Date: 20150306
  Transmission Date: 20150721
  Serious: Yes (Other)
  Sender: FDA-Public Use
  Company Number: US-AMGEN-USASP2013048164

PATIENT
  Age: 56 Year
  Sex: Male

DRUGS (1)
  1. ENBREL [Suspect]
     Active Substance: ETANERCEPT
     Indication: ANKYLOSING SPONDYLITIS
     Dosage: 50 MG, QWK
     Route: 065
     Dates: start: 20130419, end: 2014

REACTIONS (10)
  - Face injury [Not Recovered/Not Resolved]
  - Epistaxis [Recovered/Resolved]
  - Dental caries [Recovered/Resolved]
  - Tooth fracture [Not Recovered/Not Resolved]
  - Tooth abscess [Not Recovered/Not Resolved]
  - Oropharyngeal pain [Recovered/Resolved]
  - Fall [Not Recovered/Not Resolved]
  - Sinusitis [Recovered/Resolved]
  - Toothache [Not Recovered/Not Resolved]
  - Tooth infection [Recovered/Resolved]

NARRATIVE: CASE EVENT DATE: 201306
